FAERS Safety Report 4779564-4 (Version None)
Quarter: 2005Q3

REPORT INFORMATION
  Report Type: 
  Country: None (occurrence: None)
  Receive Date: 20050923
  Receipt Date: 20050916
  Transmission Date: 20060218
  Serious: Yes (Hospitalization)
  Sender: FDA-Public Use
  Company Number: 2005-03473

PATIENT
  Age: 86 Year
  Sex: Male

DRUGS (10)
  1. ANDRODERM [Suspect]
     Indication: BLOOD TESTOSTERONE DECREASED
     Dosage: 1 PATCH DAILY, TRANSDERMAL
     Route: 062
     Dates: start: 20030101, end: 20050905
  2. ANDRODERM [Suspect]
     Indication: BLOOD TESTOSTERONE DECREASED
     Dosage: 1 PATCH DAILY, TRANSDERMAL
     Route: 062
     Dates: start: 20050906
  3. VYTORIN [Suspect]
     Indication: HYPERCHOLESTEROLAEMIA
     Dosage: 1 TABLET, DAILY, ORAL
     Route: 048
     Dates: start: 20050601
  4. LIPITOR [Suspect]
     Indication: HYPERCHOLESTEROLAEMIA
     Dosage: 1 TABLET, DAILY X 3 WEEKS, ORAL
     Route: 048
     Dates: start: 20050601, end: 20050601
  5. ATENOLOL [Concomitant]
  6. OXYBUTYNIN [Concomitant]
  7. TERAZOSIN (TERAZOSIN) [Concomitant]
  8. LEVOTHYROXINE SODIUM [Concomitant]
  9. ACIPHEX [Concomitant]
  10. NITRO-DUR [Concomitant]

REACTIONS (8)
  - BACK PAIN [None]
  - BLOOD TESTOSTERONE DECREASED [None]
  - BONE INFECTION [None]
  - DRUG INEFFECTIVE [None]
  - HEART RATE IRREGULAR [None]
  - HYPERCHOLESTEROLAEMIA [None]
  - MUSCLE DISORDER [None]
  - STAPHYLOCOCCAL INFECTION [None]
